FAERS Safety Report 6671504-6 (Version None)
Quarter: 2010Q2

REPORT INFORMATION
  Report Type: 
  Country: None (occurrence: None)
  Receive Date: 20100407
  Receipt Date: 20100401
  Transmission Date: 20101027
  Serious: Yes (Hospitalization)
  Sender: FDA-Public Use
  Company Number: JP-MERCK-1003USA01879

PATIENT
  Age: 62 Year
  Sex: Male
  Weight: 58 kg

DRUGS (8)
  1. JANUVIA [Suspect]
     Indication: TYPE 2 DIABETES MELLITUS
     Route: 048
     Dates: start: 20100108, end: 20100305
  2. AMARYL [Concomitant]
     Indication: DIABETES MELLITUS
     Route: 048
     Dates: start: 20080302
  3. BASEN OD [Concomitant]
     Indication: DIABETES MELLITUS
     Route: 048
     Dates: start: 20090501
  4. ACTOS [Concomitant]
     Indication: DIABETES MELLITUS
     Route: 048
     Dates: start: 20071109
  5. BEZATOL SR [Concomitant]
     Indication: HYPERLIPIDAEMIA
     Route: 048
     Dates: start: 20020419
  6. ADALAT CC [Concomitant]
     Indication: HYPERTENSION
     Route: 048
     Dates: start: 20020419
  7. DIOVAN [Concomitant]
     Indication: HYPERTENSION
     Route: 048
     Dates: start: 20020123
  8. ASPIRIN [Concomitant]
     Indication: MYOCARDIAL ISCHAEMIA
     Route: 065
     Dates: start: 20011005

REACTIONS (1)
  - LIVER DISORDER [None]
